FAERS Safety Report 4630261-5 (Version None)
Quarter: 2005Q2

REPORT INFORMATION
  Report Type: 
  Country: None (occurrence: None)
  Receive Date: 20050405
  Receipt Date: 20050405
  Transmission Date: 20051028
  Serious: Yes (Hospitalization)
  Sender: FDA-Public Use
  Company Number: None

PATIENT
  Sex: Male
  Weight: 77.3 kg

DRUGS (3)
  1. DOCETAXEL [Suspect]
     Indication: ACUTE LYMPHOCYTIC LEUKAEMIA
     Dosage: 60 MG/M2 / WEEK * 3
     Dates: start: 20041115, end: 20041124
  2. PRILOSEC [Concomitant]
  3. BACTRIM [Concomitant]

REACTIONS (7)
  - BACTERIAL INFECTION [None]
  - BLOOD CULTURE POSITIVE [None]
  - CELLULITIS [None]
  - DECREASED APPETITE [None]
  - NECK MASS [None]
  - PANCYTOPENIA [None]
  - PYREXIA [None]
